FAERS Safety Report 21741529 (Version 1)
Quarter: 2022Q4

REPORT INFORMATION
  Report Type: Spontaneous
  Country: SI (occurrence: SI)
  Receive Date: 20221216
  Receipt Date: 20221216
  Transmission Date: 20230112
  Serious: Yes (Other)
  Sender: FDA-Public Use
  Company Number: SI-BAYER-2022A170134

PATIENT
  Age: 86 Year
  Sex: Male

DRUGS (14)
  1. NUBEQA [Suspect]
     Active Substance: DAROLUTAMIDE
     Indication: Hormone-refractory prostate cancer
     Dosage: 600 MG, BID
     Dates: start: 202201
  2. ALLOPURINOL [Concomitant]
     Active Substance: ALLOPURINOL
  3. AMLODIPINE BESYLATE [Concomitant]
     Active Substance: AMLODIPINE BESYLATE
  4. NEBIVOLOL [Concomitant]
     Active Substance: NEBIVOLOL
  5. PERINDOPRIL [Concomitant]
     Active Substance: PERINDOPRIL
  6. ROSUVASTATIN CALCIUM [Concomitant]
     Active Substance: ROSUVASTATIN CALCIUM
  7. TAMSULOSIN HYDROCHLORIDE [Concomitant]
     Active Substance: TAMSULOSIN HYDROCHLORIDE
  8. SERTRALINE HYDROCHLORIDE [Concomitant]
     Active Substance: SERTRALINE HYDROCHLORIDE
     Indication: Depression
  9. YASNAL [Concomitant]
  10. WARFARIN SODIUM [Concomitant]
     Active Substance: WARFARIN SODIUM
  11. TRIPTORELIN ACETATE [Concomitant]
     Active Substance: TRIPTORELIN ACETATE
  12. BICALUTAMIDE [Concomitant]
     Active Substance: BICALUTAMIDE
  13. CALCIUM CARBONATE [Concomitant]
     Active Substance: CALCIUM CARBONATE
  14. CHOLECALCIFEROL [Concomitant]
     Active Substance: CHOLECALCIFEROL

REACTIONS (11)
  - Syncope [None]
  - Prothrombin time abnormal [None]
  - COVID-19 [None]
  - Decreased appetite [None]
  - Fluid intake reduced [None]
  - Muscle atrophy [Recovering/Resolving]
  - Body mass index decreased [Not Recovered/Not Resolved]
  - Fall [None]
  - Head injury [None]
  - Tooth extraction [None]
  - Cognitive disorder [None]
